FAERS Safety Report 18908929 (Version 2)
Quarter: 2021Q1

REPORT INFORMATION
  Report Type: Spontaneous
  Country: US (occurrence: US)
  Receive Date: 20210218
  Receipt Date: 20210312
  Transmission Date: 20210420
  Serious: No
  Sender: FDA-Public Use
  Company Number: US-ALXN-A202102306

PATIENT
  Sex: Female

DRUGS (1)
  1. STRENSIQ [Suspect]
     Active Substance: ASFOTASE ALFA
     Indication: HYPOPHOSPHATASIA
     Dosage: 234 MG, TIW, 0.8ML IN 2 SYRINGES AND 0.74ML IN THE THIRD SYRINGE (3 GREEN VIALS TOTAL)
     Route: 058
     Dates: start: 20210212

REACTIONS (4)
  - Injection site pain [Unknown]
  - Nausea [Unknown]
  - Feeling abnormal [Unknown]
  - Injection site erythema [Unknown]
